FAERS Safety Report 4552056-3 (Version None)
Quarter: 2005Q1

REPORT INFORMATION
  Report Type: 
  Country: None (occurrence: None)
  Receive Date: 20050113
  Receipt Date: 20041015
  Transmission Date: 20050727
  Serious: Yes (Hospitalization)
  Sender: FDA-Public Use
  Company Number: DE-MERCK-0410DEU00510

PATIENT
  Age: 37 Year
  Sex: Male
  Weight: 85 kg

DRUGS (8)
  1. VIOXX [Suspect]
     Indication: OSTEOARTHRITIS
     Route: 048
     Dates: start: 20020101, end: 20040901
  2. THEOPHYLLINE [Concomitant]
     Route: 065
     Dates: start: 20000101
  3. ALBUTEROL [Concomitant]
     Route: 065
     Dates: start: 20000101
  4. BUDESONIDE AND FORMOTEROL FUMARATE [Concomitant]
     Route: 065
     Dates: start: 20000101
  5. MOXONIDINE [Concomitant]
     Route: 065
     Dates: start: 20020101
  6. INDAPAMIDE [Concomitant]
     Route: 065
     Dates: start: 20020101
  7. ASPIRIN [Concomitant]
     Route: 065
     Dates: start: 20030101
  8. NITRENDIPINE [Concomitant]
     Route: 065
     Dates: start: 20030101

REACTIONS (3)
  - ARRHYTHMIA [None]
  - BLOOD PRESSURE FLUCTUATION [None]
  - HEADACHE [None]
